FAERS Safety Report 12765728 (Version 1)
Quarter: 2016Q3

REPORT INFORMATION
  Report Type: Spontaneous
  Country: US (occurrence: US)
  Receive Date: 20160915
  Receipt Date: 20160915
  Transmission Date: 20161109
  Serious: No
  Sender: FDA-Public Use
  Company Number: None

PATIENT
  Age: 71 Year
  Sex: Female

DRUGS (1)
  1. SOVALDI [Suspect]
     Active Substance: SOFOSBUVIR
     Indication: HEPATITIS C
     Route: 048
     Dates: start: 20160505, end: 20160531

REACTIONS (3)
  - Cerebrovascular accident [None]
  - Heart rate increased [None]
  - Visual acuity reduced [None]

NARRATIVE: CASE EVENT DATE: 20160531
